FAERS Safety Report 5693791-3 (Version None)
Quarter: 2008Q2

REPORT INFORMATION
  Report Type: 
  Country: None (occurrence: None)
  Receive Date: 20080403
  Receipt Date: 20080328
  Transmission Date: 20081010
  Serious: Yes (Other)
  Sender: FDA-Public Use
  Company Number: US-ASTRAZENECA-2008UW05013

PATIENT
  Age: 72 Year
  Sex: Female
  Weight: 52.6 kg

DRUGS (7)
  1. ARIMIDEX [Suspect]
     Indication: BREAST CANCER
     Route: 048
     Dates: start: 20080201
  2. BENICAR [Concomitant]
  3. ENALAPRIL MALEATE [Concomitant]
  4. NIFEDIPINE [Concomitant]
  5. ZOLOFT [Concomitant]
  6. MORPHINE [Concomitant]
  7. SULPHATE [Concomitant]
     Dosage: 30 MG

REACTIONS (3)
  - BLOOD PRESSURE INCREASED [None]
  - CONSTIPATION [None]
  - INFLAMMATORY BOWEL DISEASE [None]
